FAERS Safety Report 9508401 (Version 3)
Quarter: 2013Q4

REPORT INFORMATION
  Report Type: Spontaneous
  Country: US (occurrence: US)
  Receive Date: 20130909
  Receipt Date: 20131107
  Transmission Date: 20140711
  Serious: Yes (Other)
  Sender: FDA-Public Use
  Company Number: US-009507513-1309USA002175

PATIENT
  Age: 26 Year
  Sex: Female
  Weight: 109.39 kg

DRUGS (3)
  1. IMPLANON [Suspect]
     Indication: CONTRACEPTION
     Dosage: ETONOGESTREL IMPLANT
     Route: 059
     Dates: start: 20120319
  2. IMPLANON [Suspect]
     Indication: POLYCYSTIC OVARIES
  3. IMPLANON [Suspect]
     Indication: OLIGOMENORRHOEA

REACTIONS (2)
  - Gastric bypass [Unknown]
  - Vaginal haemorrhage [Not Recovered/Not Resolved]
